FAERS Safety Report 4439955-8 (Version None)
Quarter: 2004Q3

REPORT INFORMATION
  Report Type: 
  Country: None (occurrence: None)
  Receive Date: 20040831
  Receipt Date: 20040818
  Transmission Date: 20050211
  Serious: Yes (Hospitalization)
  Sender: FDA-Public Use
  Company Number: 2004AP03310

PATIENT
  Age: 86 Year
  Sex: Male

DRUGS (5)
  1. CASODEX [Suspect]
     Indication: PROSTATE CANCER
     Dosage: 80 MG DAILY PO
     Route: 048
     Dates: start: 20040610, end: 20040622
  2. ZOLADEX [Suspect]
     Indication: PROSTATE CANCER
     Dosage: 3.6 MG Q4WK SQ
     Route: 058
     Dates: start: 20040616
  3. MENESIT [Concomitant]
  4. CABERGOLINE [Concomitant]
  5. DOPS [Concomitant]

REACTIONS (3)
  - FACE OEDEMA [None]
  - LARYNGEAL OEDEMA [None]
  - RASH [None]
